FAERS Safety Report 10089854 (Version 1)
Quarter: 2014Q2

REPORT INFORMATION
  Report Type: Spontaneous
  Country: US (occurrence: US)
  Receive Date: 20140421
  Receipt Date: 20140421
  Transmission Date: 20141212
  Serious: No
  Sender: FDA-Public Use
  Company Number: US-ABBVIE-13P-163-1148448-00

PATIENT
  Age: 9 Year
  Sex: Female
  Weight: 55.84 kg

DRUGS (2)
  1. LUPRON DEPOT-PED [Suspect]
     Indication: BONE DISORDER
     Dates: start: 20130425
  2. LUPRON DEPOT-PED [Suspect]
     Indication: PRECOCIOUS PUBERTY

REACTIONS (7)
  - Device malfunction [Recovered/Resolved]
  - Dizziness [Not Recovered/Not Resolved]
  - Viral infection [Recovered/Resolved]
  - Blood pressure increased [Recovering/Resolving]
  - Injection site pain [Recovered/Resolved]
  - Headache [Recovered/Resolved]
  - Abdominal pain upper [Recovered/Resolved]
